FAERS Safety Report 25840897 (Version 1)
Quarter: 2025Q3

REPORT INFORMATION
  Report Type: Other
  Country: CH (occurrence: CH)
  Receive Date: 20250924
  Receipt Date: 20250924
  Transmission Date: 20251021
  Serious: Yes (Other)
  Sender: APPCO PHARMA LLC
  Company Number: CH-Appco Pharma LLC-2185191

PATIENT
  Sex: Female

DRUGS (3)
  1. METRONIDAZOLE [Suspect]
     Active Substance: METRONIDAZOLE
     Indication: Inflammation
  2. CLARITHROMYCIN [Suspect]
     Active Substance: CLARITHROMYCIN
  3. CEFTRIAXONE [Suspect]
     Active Substance: CEFTRIAXONE

REACTIONS (2)
  - Maternal exposure during pregnancy [Unknown]
  - Premature delivery [Unknown]
